FAERS Safety Report 6757213-3 (Version None)
Quarter: 2010Q2

REPORT INFORMATION
  Report Type: 
  Country: None (occurrence: None)
  Receive Date: 20100607
  Receipt Date: 20100527
  Transmission Date: 20101027
  Serious: Yes (Hospitalization)
  Sender: FDA-Public Use
  Company Number: US-BIOGENIDEC-2010BI017984

PATIENT
  Age: 40 Year
  Sex: Female

DRUGS (3)
  1. AVONEX [Suspect]
     Indication: MULTIPLE SCLEROSIS
     Route: 030
     Dates: start: 19961001, end: 20010101
  2. AVONEX [Suspect]
     Route: 030
     Dates: start: 20080305, end: 20100201
  3. PAIN PILLS [Concomitant]

REACTIONS (1)
  - OVERDOSE [None]
